FAERS Safety Report 14472647 (Version 2)
Quarter: 2018Q1

REPORT INFORMATION
  Report Type: Spontaneous
  Country: JP (occurrence: JP)
  Receive Date: 20180201
  Receipt Date: 20180209
  Transmission Date: 20180509
  Serious: Yes (Hospitalization, Other)
  Sender: FDA-Public Use
  Company Number: JP-ORION CORPORATION ORION PHARMA-ENT 2018-0015

PATIENT
  Age: 32 Year
  Sex: Male
  Weight: 102 kg

DRUGS (20)
  1. SYMMETREL [Suspect]
     Active Substance: AMANTADINE HYDROCHLORIDE
     Route: 048
  2. BI-SIFROL [Concomitant]
     Active Substance: PRAMIPEXOLE
     Route: 065
  3. FP [Concomitant]
     Active Substance: SELEGILINE HYDROCHLORIDE
     Route: 065
  4. MIRAPEX [Concomitant]
     Active Substance: PRAMIPEXOLE DIHYDROCHLORIDE
     Route: 065
  5. NEUPRO [Concomitant]
     Active Substance: ROTIGOTINE
     Route: 065
  6. COMTAN [Suspect]
     Active Substance: ENTACAPONE
     Route: 048
  7. MENESIT [Concomitant]
     Active Substance: CARBIDOPA\LEVODOPA
     Route: 065
  8. TRERIEF [Concomitant]
     Active Substance: ZONISAMIDE
     Route: 065
  9. COMTAN [Suspect]
     Active Substance: ENTACAPONE
     Route: 048
  10. NEODOPASTON [Concomitant]
     Active Substance: CARBIDOPA\LEVODOPA
     Route: 065
  11. COMTAN [Suspect]
     Active Substance: ENTACAPONE
     Indication: PARKINSON^S DISEASE
     Route: 048
  12. COMTAN [Suspect]
     Active Substance: ENTACAPONE
     Route: 048
     Dates: end: 201708
  13. REQUIP [Concomitant]
     Active Substance: ROPINIROLE HYDROCHLORIDE
     Route: 065
  14. CABASER [Concomitant]
     Active Substance: CABERGOLINE
     Route: 065
  15. COMTAN [Suspect]
     Active Substance: ENTACAPONE
     Route: 048
     Dates: start: 2006
  16. APOKYN [Concomitant]
     Active Substance: APOMORPHINE HYDROCHLORIDE
     Route: 065
  17. SYMMETREL [Suspect]
     Active Substance: AMANTADINE HYDROCHLORIDE
     Indication: PARKINSON^S DISEASE
     Route: 048
  18. SYMMETREL [Suspect]
     Active Substance: AMANTADINE HYDROCHLORIDE
     Route: 048
  19. E C DOPAL [Concomitant]
     Route: 065
  20. ARTANE [Concomitant]
     Active Substance: TRIHEXYPHENIDYL HYDROCHLORIDE
     Route: 065

REACTIONS (12)
  - Impulse-control disorder [Not Recovered/Not Resolved]
  - Anger [Unknown]
  - Akinesia [Not Recovered/Not Resolved]
  - Musculoskeletal stiffness [Unknown]
  - Therapeutic response shortened [Unknown]
  - Dyskinesia [Not Recovered/Not Resolved]
  - Muscle rigidity [Unknown]
  - Foot fracture [Unknown]
  - Hyporeflexia [Unknown]
  - Tremor [Not Recovered/Not Resolved]
  - Postural reflex impairment [Not Recovered/Not Resolved]
  - Orthostatic hypotension [Unknown]

NARRATIVE: CASE EVENT DATE: 2015
